FAERS Safety Report 9031621 (Version 4)
Quarter: 2013Q2

REPORT INFORMATION
  Report Type: Spontaneous
  Country: CO (occurrence: CO)
  Receive Date: 20130124
  Receipt Date: 20130416
  Transmission Date: 20140414
  Serious: Yes (Hospitalization, Other)
  Sender: FDA-Public Use
  Company Number: CO-ROCHE-1183371

PATIENT
  Age: 92 Year
  Sex: Male

DRUGS (9)
  1. LUCENTIS [Suspect]
     Indication: CATARACT
     Route: 050
     Dates: start: 20120116
  2. LUCENTIS [Suspect]
     Route: 050
     Dates: start: 20120316, end: 20121026
  3. LUCENTIS [Suspect]
     Route: 050
     Dates: start: 20121026
  4. OMEPRAZOLE [Concomitant]
     Route: 065
  5. NIFEDIPINE [Concomitant]
     Route: 065
  6. LORATADIN [Concomitant]
     Route: 065
  7. EPAMIN [Concomitant]
     Route: 065
  8. LOVASTATIN [Concomitant]
  9. ASPIRIN [Concomitant]

REACTIONS (1)
  - Ischaemic stroke [Recovering/Resolving]
